FAERS Safety Report 5238356-2 (Version None)
Quarter: 2007Q1

REPORT INFORMATION
  Report Type: 
  Country: None (occurrence: None)
  Receive Date: 20061208
  Receipt Date: 20050228
  Transmission Date: 20070707
  Serious: Yes (Other)
  Sender: FDA-Public Use
  Company Number: 2005UW03213

PATIENT
  Age: 72 Year
  Sex: Male
  Weight: 83.914 kg

DRUGS (5)
  1. CRESTOR [Suspect]
     Indication: BLOOD CHOLESTEROL INCREASED
     Dosage: 5 MG DAILY PO
     Route: 048
     Dates: end: 20050227
  2. CENTRUM [Concomitant]
  3. MULTI-VITAMINS [Concomitant]
  4. COQ10 [Concomitant]
  5. OCUVITE [Concomitant]

REACTIONS (5)
  - DRY EYE [None]
  - EYE HAEMORRHAGE [None]
  - EYE IRRITATION [None]
  - VISION BLURRED [None]
  - VITREOUS FLOATERS [None]
